FAERS Safety Report 5086989-9 (Version None)
Quarter: 2006Q3

REPORT INFORMATION
  Report Type: 
  Country: None (occurrence: None)
  Receive Date: 20060818
  Receipt Date: 20060731
  Transmission Date: 20061208
  Serious: Yes (Hospitalization, Other)
  Sender: FDA-Public Use
  Company Number: US200608000449

PATIENT
  Age: 54 Year
  Sex: Female
  Weight: 85.7 kg

DRUGS (1)
  1. ZYPREXA [Suspect]
     Indication: MENTAL DISORDER
     Dosage: 15 MG
     Dates: end: 20020301

REACTIONS (3)
  - CHOLELITHIASIS [None]
  - DIABETES MELLITUS [None]
  - PANCREATITIS [None]
